FAERS Safety Report 6569438-0 (Version None)
Quarter: 2010Q1

REPORT INFORMATION
  Report Type: 
  Country: None (occurrence: None)
  Receive Date: 20100202
  Receipt Date: 20100202
  Transmission Date: 20100710
  Serious: No
  Sender: FDA-Public Use
  Company Number: None

PATIENT
  Age: 66 Year
  Sex: Female
  Weight: 50.3493 kg

DRUGS (1)
  1. VITAMIN D [Suspect]
     Indication: VITAMIN D
     Dosage: 50,000 IU'S 1 PER WK. MOUTH TOOK ONLY ONE

REACTIONS (3)
  - DRY MOUTH [None]
  - ORAL DISORDER [None]
  - PARAESTHESIA ORAL [None]
